FAERS Safety Report 17198268 (Version 2)
Quarter: 2020Q1

REPORT INFORMATION
  Report Type: Spontaneous
  Country: FR (occurrence: FR)
  Receive Date: 20191225
  Receipt Date: 20200104
  Transmission Date: 20200409
  Serious: Yes (Hospitalization, Other)
  Sender: FDA-Public Use
  Company Number: FR-AUROBINDO-AUR-APL-2019-105888

PATIENT
  Age: 78 Year
  Sex: Male
  Weight: 87 kg

DRUGS (9)
  1. HALDOL [Suspect]
     Active Substance: HALOPERIDOL
     Indication: SEDATION
     Dosage: 1.5 DOSAGE FORM, ONCE A DAY (IF NECESSARY)
     Route: 030
     Dates: start: 20191029, end: 20191031
  2. HALDOL [Suspect]
     Active Substance: HALOPERIDOL
     Indication: SEDATION
     Dosage: 30 GTT DROPS, ONCE A DAY (IF NECESSARY)
     Route: 048
     Dates: start: 20191029, end: 20191031
  3. KARDEGIC [Concomitant]
     Active Substance: ASPIRIN DL-LYSINE
     Indication: PRODUCT USED FOR UNKNOWN INDICATION
     Dosage: 1 DOSAGE FORM, ONCE A DAY
     Route: 048
  4. LEVOTHYROXINE SODIUM. [Concomitant]
     Active Substance: LEVOTHYROXINE SODIUM
     Indication: PRODUCT USED FOR UNKNOWN INDICATION
     Dosage: 50 MICROGRAM, ONCE A DAY
     Route: 048
  5. MIDAZOLAM HYDROCHLORIDE. [Concomitant]
     Active Substance: MIDAZOLAM HYDROCHLORIDE
     Indication: PRODUCT USED FOR UNKNOWN INDICATION
     Dosage: UNK (UNSPECIFIED)
     Route: 065
     Dates: start: 20191029, end: 20191029
  6. OXAZEPAM. [Concomitant]
     Active Substance: OXAZEPAM
     Indication: PRODUCT USED FOR UNKNOWN INDICATION
     Dosage: 10 MILLIGRAM, ONCE A DAY
     Route: 048
  7. MIRTAZAPINE ARROW [Suspect]
     Active Substance: MIRTAZAPINE
     Indication: PRODUCT USED FOR UNKNOWN INDICATION
     Dosage: 1 DOSAGE FORM, ONCE A DAY (IF NECESSARY)
     Route: 048
     Dates: start: 20191029
  8. LOVENOX [Concomitant]
     Active Substance: ENOXAPARIN SODIUM
     Indication: PRODUCT USED FOR UNKNOWN INDICATION
     Dosage: UNK
     Route: 030
     Dates: start: 20191029
  9. RAMIPRIL. [Concomitant]
     Active Substance: RAMIPRIL
     Indication: PRODUCT USED FOR UNKNOWN INDICATION
     Dosage: 5 MILLIGRAM, ONCE A DAY
     Route: 048

REACTIONS (1)
  - Hepatocellular injury [Recovering/Resolving]

NARRATIVE: CASE EVENT DATE: 20191031
